FAERS Safety Report 12670941 (Version 1)
Quarter: 2016Q3

REPORT INFORMATION
  Report Type: Spontaneous
  Country: DE (occurrence: DE)
  Receive Date: 20160822
  Receipt Date: 20160822
  Transmission Date: 20161109
  Serious: Yes (Hospitalization, Other)
  Sender: FDA-Public Use
  Company Number: DE-ACCORD-043235

PATIENT
  Age: 2 Week
  Sex: Female
  Weight: 4.2 kg

DRUGS (2)
  1. LAMICTAL [Suspect]
     Active Substance: LAMOTRIGINE
     Indication: EPILEPSY
     Dosage: 100 MG/D
     Route: 063
  2. LEVETIRACETAM. [Suspect]
     Active Substance: LEVETIRACETAM
     Indication: EPILEPSY
     Dosage: DOSAGE INCREASE FROM 2X2000 MG/D TO 2X2250 MG/D
     Route: 063

REACTIONS (5)
  - Selective eating disorder [Not Recovered/Not Resolved]
  - Gastrooesophageal reflux disease [Not Recovered/Not Resolved]
  - Dehydration [Recovered/Resolved]
  - Exposure during breast feeding [Unknown]
  - Urinary tract infection [Unknown]
